FAERS Safety Report 10968359 (Version 1)
Quarter: 2015Q1

REPORT INFORMATION
  Report Type: Spontaneous
  Country: US (occurrence: None)
  Receive Date: 20150226
  Receipt Date: 20150226
  Transmission Date: 20150721
  Serious: Yes (Other)
  Sender: FDA-Public Use
  Company Number: TPA2012A03732

PATIENT
  Age: 70 Year
  Sex: Male
  Weight: 88.91 kg

DRUGS (8)
  1. METFORMIN [Concomitant]
     Active Substance: METFORMIN HYDROCHLORIDE
  2. HYDROCHLOROTHIAZIDE (HYDROCHLOROTHIAZIDE) [Concomitant]
     Active Substance: HYDROCHLOROTHIAZIDE
  3. SIMVASTATIN (SIMVASTATIN) [Concomitant]
     Active Substance: SIMVASTATIN
  4. GLUCOTROL [Concomitant]
     Active Substance: GLIPIZIDE
  5. ACTOS [Suspect]
     Active Substance: PIOGLITAZONE HYDROCHLORIDE
     Indication: TYPE 2 DIABETES MELLITUS
     Route: 048
     Dates: start: 201002, end: 201004
  6. GLIPIZIDE (GLIPIZIDE) [Concomitant]
     Active Substance: GLIPIZIDE
  7. DIOVAN [Concomitant]
     Active Substance: VALSARTAN
  8. JANUMET (JANUMET) [Concomitant]

REACTIONS (1)
  - Bladder transitional cell carcinoma stage III [None]

NARRATIVE: CASE EVENT DATE: 201006
